FAERS Safety Report 9345559 (Version 2)
Quarter: 2014Q1

REPORT INFORMATION
  Report Type: Spontaneous
  Country: IT (occurrence: IT)
  Receive Date: 20130613
  Receipt Date: 20140218
  Transmission Date: 20141002
  Serious: Yes (Life-Threatening, Hospitalization, Disabling)
  Sender: FDA-Public Use
  Company Number: IT-JNJFOC-20130602936

PATIENT
  Age: 75 Year
  Sex: Male

DRUGS (2)
  1. STELARA [Suspect]
     Indication: PSORIASIS
     Route: 058
     Dates: start: 20110618, end: 20130325
  2. LAMIVUDINE [Concomitant]
     Indication: PROPHYLAXIS
     Route: 048
     Dates: start: 20110601

REACTIONS (2)
  - Metastases to liver [Not Recovered/Not Resolved]
  - Lung adenocarcinoma metastatic [Not Recovered/Not Resolved]
